FAERS Safety Report 20864076 (Version 7)
Quarter: 2024Q4

REPORT INFORMATION
  Report Type: Report from Study
  Country: JP (occurrence: JP)
  Receive Date: 20220523
  Receipt Date: 20241230
  Transmission Date: 20250115
  Serious: Yes (Hospitalization, Other)
  Sender: TAKEDA
  Company Number: JP-TAKEDA-2022TJP049072

PATIENT
  Age: 36 Year
  Sex: Male
  Weight: 64.5 kg

DRUGS (13)
  1. TEDUGLUTIDE [Suspect]
     Active Substance: TEDUGLUTIDE
     Indication: Short-bowel syndrome
     Dosage: 0.025 MILLIGRAM/KILOGRAM
     Dates: start: 20211224, end: 20220131
  2. TEDUGLUTIDE [Suspect]
     Active Substance: TEDUGLUTIDE
     Dosage: 0.025 MILLIGRAM/KILOGRAM
     Dates: start: 20220225, end: 20220508
  3. TEDUGLUTIDE [Suspect]
     Active Substance: TEDUGLUTIDE
     Dosage: 0.025 MILLIGRAM/KILOGRAM
     Dates: start: 20220609, end: 20240818
  4. TEDUGLUTIDE [Suspect]
     Active Substance: TEDUGLUTIDE
     Dosage: 0.025 MILLIGRAM/KILOGRAM
  5. CALCIUM GLUCONATE\DEXTROSE\MAGNESIUM SULFATE\POTASSIUM ACETATE\POTASSI [Concomitant]
     Active Substance: CALCIUM GLUCONATE\DEXTROSE\MAGNESIUM SULFATE\POTASSIUM ACETATE\POTASSIUM PHOSPHATE, DIBASIC\ZINC SUL
     Dosage: UNK
  6. PROTEAMIN [Concomitant]
     Dosage: UNK
  7. FEBUXOSTAT [Concomitant]
     Active Substance: FEBUXOSTAT
     Dosage: UNK
  8. BONALON [Concomitant]
     Active Substance: ALENDRONATE SODIUM
     Dosage: 35 MILLIGRAM
  9. MIYA-BM [Concomitant]
     Active Substance: CLOSTRIDIUM BUTYRICUM SPORES STRAIN M-55
     Indication: Short-bowel syndrome
     Dosage: 3 DOSAGE FORM
  10. LOPEMIN [Concomitant]
     Indication: Short-bowel syndrome
     Dosage: 6 DOSAGE FORM
  11. URSODIOL [Concomitant]
     Active Substance: URSODIOL
     Dosage: 300 MILLIGRAM
  12. TRAZODONE HYDROCHLORIDE [Concomitant]
     Active Substance: TRAZODONE HYDROCHLORIDE
     Dosage: 25 MILLIGRAM
  13. FLUNITRAZEPAM [Concomitant]
     Active Substance: FLUNITRAZEPAM
     Dosage: UNK

REACTIONS (6)
  - Hypervolaemia [Recovered/Resolved]
  - Cholelithiasis [Recovered/Resolved]
  - Device related infection [Recovering/Resolving]
  - Device related infection [Recovering/Resolving]
  - Psoas abscess [Recovered/Resolved]
  - Device related infection [Recovered/Resolved]

NARRATIVE: CASE EVENT DATE: 20220128
